FAERS Safety Report 9143094 (Version 2)
Quarter: 2013Q1

REPORT INFORMATION
  Report Type: Spontaneous
  Country: FR (occurrence: FR)
  Receive Date: 20130306
  Receipt Date: 20130328
  Transmission Date: 20140127
  Serious: Yes (Hospitalization, Other)
  Sender: FDA-Public Use
  Company Number: FR-PFIZER INC-2013074414

PATIENT
  Age: 64 Year
  Sex: Male

DRUGS (9)
  1. SOLU-MEDROL [Suspect]
     Indication: CHEMOTHERAPY
     Dosage: 120 MG DAILY
     Route: 042
     Dates: start: 20130125, end: 20130127
  2. PRIMPERAN [Suspect]
     Dosage: 10 MG DAILY
     Route: 042
     Dates: start: 20130126, end: 20130127
  3. ZOPHREN [Suspect]
     Dosage: 8 MG, 2 AMPOULES
     Route: 042
     Dates: start: 20130125, end: 20130127
  4. METHOTREXATE [Concomitant]
     Dosage: 5.5 G DAILY OVER 3 HOURS
     Route: 042
     Dates: start: 20130125, end: 20130125
  5. ETOPOSIDE [Concomitant]
     Dosage: 180 MG, UNK
     Route: 042
     Dates: start: 20130126, end: 20130126
  6. ACUPAN [Concomitant]
     Dosage: 10 MG
     Route: 042
     Dates: start: 20130121, end: 20130125
  7. ZELITREX [Concomitant]
     Dosage: 500 MG, 2X/DAY
     Route: 048
     Dates: start: 20130121, end: 20130128
  8. STILNOX [Concomitant]
     Dosage: ONE TABLET
     Dates: start: 20130126, end: 20130126
  9. STILNOX [Concomitant]
     Dosage: 1/2 TABLET
     Dates: start: 20130127, end: 20130127

REACTIONS (2)
  - Sinus bradycardia [Recovered/Resolved]
  - Renal failure [Unknown]
